FAERS Safety Report 19517284 (Version 1)
Quarter: 2021Q3

REPORT INFORMATION
  Report Type: Report from Study
  Country: PT (occurrence: PT)
  Receive Date: 20210712
  Receipt Date: 20210712
  Transmission Date: 20211014
  Serious: Yes (Other)
  Sender: FDA-Public Use
  Company Number: PT-CELLTRION INC.-2021PT009167

PATIENT

DRUGS (9)
  1. CARBOPLATIN. [Suspect]
     Active Substance: CARBOPLATIN
     Indication: BREAST CANCER
     Dosage: 240 MG
     Route: 042
     Dates: start: 20200908
  2. LETROZOLE. [Suspect]
     Active Substance: LETROZOLE
     Indication: BREAST CANCER
     Dosage: UNK, QD
     Route: 048
     Dates: start: 20171124, end: 20180920
  3. TRASTUZUMAB (UNKNOWN) [Suspect]
     Active Substance: TRASTUZUMAB
     Indication: BREAST CANCER
     Dosage: 600 MG, EVERY 3 WEEKS
     Route: 041
     Dates: start: 20170504, end: 20180920
  4. FULVESTRANT. [Suspect]
     Active Substance: FULVESTRANT
     Indication: BREAST CANCER
     Dosage: 500 MG, Q4WEEKS
     Route: 058
     Dates: start: 20190111
  5. PERTUZUMAB. [Suspect]
     Active Substance: PERTUZUMAB
     Indication: BREAST CANCER
     Dosage: 420 MG, EVERY 3 WEEKS
     Route: 042
     Dates: start: 20170504, end: 20180920
  6. TRASTUZUMAB EMTANSINE [Suspect]
     Active Substance: ADO-TRASTUZUMAB EMTANSINE
     Indication: BREAST CANCER
     Dosage: 230 MG EVERY 3 WEEKS
     Route: 042
     Dates: start: 20181130
  7. GEMCITABINE. [Suspect]
     Active Substance: GEMCITABINE
     Indication: BREAST CANCER
     Dosage: 1000 MG/M2
     Route: 016
     Dates: start: 20200908
  8. DOCETAXEL. [Suspect]
     Active Substance: DOCETAXEL
     Indication: BREAST CANCER
     Dosage: 100 MG/M2, EVERY 3 WEEKS
     Route: 042
     Dates: start: 20170504, end: 20170922
  9. ESCITALOPRAM [Concomitant]
     Active Substance: ESCITALOPRAM OXALATE
     Dosage: UNK
     Dates: start: 20180505

REACTIONS (3)
  - Hepatotoxicity [Recovering/Resolving]
  - Overdose [Unknown]
  - Anaemia [Recovering/Resolving]

NARRATIVE: CASE EVENT DATE: 20210223
